FAERS Safety Report 4862625-9 (Version None)
Quarter: 2005Q4

REPORT INFORMATION
  Report Type: 
  Country: None (occurrence: None)
  Receive Date: 20051221
  Receipt Date: 20051209
  Transmission Date: 20060501
  Serious: Yes (Other)
  Sender: FDA-Public Use
  Company Number: CA-BRISTOL-MYERS SQUIBB COMPANY-13220546

PATIENT
  Age: 81 Year
  Sex: Male

DRUGS (12)
  1. TEQUIN [Suspect]
     Route: 048
  2. ACETAMINOPHEN [Concomitant]
  3. AMITRIPTYLINE [Concomitant]
  4. ASPIRIN [Concomitant]
     Route: 048
  5. FUROSEMIDE [Concomitant]
  6. GABAPENTIN [Concomitant]
  7. GRAVOL TAB [Concomitant]
  8. MONOPRIL [Concomitant]
  9. HYDROMORPHONE [Concomitant]
  10. PREDNISONE TAB [Concomitant]
  11. SALBUTAMOL [Concomitant]
     Route: 055
  12. WARFARIN [Concomitant]

REACTIONS (1)
  - HYPOGLYCAEMIA [None]
